FAERS Safety Report 17760161 (Version 1)
Quarter: 2020Q2

REPORT INFORMATION
  Report Type: Spontaneous
  Country: JP (occurrence: JP)
  Receive Date: 20200508
  Receipt Date: 20200508
  Transmission Date: 20200714
  Serious: Yes (Other)
  Sender: FDA-Public Use
  Company Number: JP-PFIZER INC-2020185181

PATIENT
  Age: 80 Year
  Sex: Male

DRUGS (1)
  1. AZULFIDINE EN-TABS [Suspect]
     Active Substance: SULFASALAZINE
     Dosage: 500 MG, 1X/DAY
     Route: 048

REACTIONS (3)
  - Altered state of consciousness [Unknown]
  - Encephalitis [Unknown]
  - Encephalopathy [Unknown]
